FAERS Safety Report 8265694-1 (Version None)
Quarter: 2012Q2

REPORT INFORMATION
  Report Type: 
  Country: None (occurrence: None)
  Receive Date: 20120406
  Receipt Date: 20120329
  Transmission Date: 20120825
  Serious: Yes (Death, Other)
  Sender: FDA-Public Use
  Company Number: JP-ABBOTT-10P-087-0629439-00

PATIENT
  Sex: Female
  Weight: 56.7 kg

DRUGS (8)
  1. CHLORHEXIDINE HYDROCHLORIDE/DIPHENHYDRAMINE SALICYLATE/HYDROCORTISONE [Concomitant]
     Indication: STOMATITIS
     Route: 061
  2. HUMIRA [Suspect]
     Route: 058
     Dates: start: 20090805
  3. FELBINAC [Concomitant]
     Indication: RHEUMATOID ARTHRITIS
     Route: 062
  4. ALENDRONATE SODIUM [Concomitant]
     Indication: OSTEOPOROSIS
     Route: 048
     Dates: start: 20090731
  5. HUMIRA [Suspect]
     Indication: RHEUMATOID ARTHRITIS
     Route: 058
  6. BUCILLAMINE [Concomitant]
     Indication: RHEUMATOID ARTHRITIS
     Route: 048
  7. ETODOLAC [Concomitant]
     Indication: RHEUMATOID ARTHRITIS
     Route: 048
  8. PREDNISOLONE [Concomitant]
     Indication: RHEUMATOID ARTHRITIS
     Route: 048

REACTIONS (3)
  - PULMONARY EMBOLISM [None]
  - VENOUS THROMBOSIS LIMB [None]
  - SUFFOCATION FEELING [None]
